FAERS Safety Report 5789458-3 (Version None)
Quarter: 2008Q2

REPORT INFORMATION
  Report Type: 
  Country: None (occurrence: None)
  Receive Date: 20080626
  Receipt Date: 20080208
  Transmission Date: 20081010
  Serious: No
  Sender: FDA-Public Use
  Company Number: US-ASTRAZENECA-2008UW02841

PATIENT
  Age: 77 Year
  Sex: Female
  Weight: 69.9 kg

DRUGS (3)
  1. PULMICORT FLEXHALER [Suspect]
     Indication: LUNG INFECTION
     Route: 055
  2. LIPITOR [Concomitant]
  3. TOPROL-XL [Concomitant]

REACTIONS (2)
  - DYSPHONIA [None]
  - THROAT IRRITATION [None]
